FAERS Safety Report 11871607 (Version 4)
Quarter: 2016Q1

REPORT INFORMATION
  Report Type: Spontaneous
  Country: FR (occurrence: FR)
  Receive Date: 20151228
  Receipt Date: 20160317
  Transmission Date: 20160526
  Serious: Yes (Hospitalization)
  Sender: FDA-Public Use
  Company Number: FR-CLINIGEN GROUP PLC/ CLINIGEN HEALTHCARE LTD-FR-CLGN-15-00107

PATIENT
  Age: 55 Year
  Sex: Female

DRUGS (20)
  1. COLIMYCINE [Suspect]
     Active Substance: COLISTIMETHATE SODIUM
     Indication: PRODUCT USED FOR UNKNOWN INDICATION
     Route: 042
     Dates: start: 20151124, end: 20151203
  2. DERMORELLE [Concomitant]
     Indication: PRODUCT USED FOR UNKNOWN INDICATION
  3. CLOXACILLINE [Suspect]
     Active Substance: CLOXACILLIN
     Indication: PRODUCT USED FOR UNKNOWN INDICATION
     Route: 042
     Dates: start: 20150820, end: 20150826
  4. CLOXACILLINE [Suspect]
     Active Substance: CLOXACILLIN
     Route: 042
     Dates: start: 20151030, end: 20151101
  5. SORIATANE [Concomitant]
     Active Substance: ACITRETIN
     Indication: PRODUCT USED FOR UNKNOWN INDICATION
  6. ATARAX [Concomitant]
     Active Substance: HYDROXYZINE\HYDROXYZINE HYDROCHLORIDE
     Indication: PRODUCT USED FOR UNKNOWN INDICATION
  7. MAGNESIUM [Concomitant]
     Active Substance: MAGNESIUM
     Indication: PRODUCT USED FOR UNKNOWN INDICATION
     Route: 042
     Dates: start: 20150914, end: 20150914
  8. ELTEANS [Concomitant]
     Indication: PRODUCT USED FOR UNKNOWN INDICATION
  9. VENLAFAXINE [Concomitant]
     Active Substance: VENLAFAXINE HYDROCHLORIDE
     Indication: PRODUCT USED FOR UNKNOWN INDICATION
  10. G5 [Concomitant]
     Indication: PRODUCT USED FOR UNKNOWN INDICATION
     Route: 042
     Dates: start: 20150914, end: 20150914
  11. GENTAMYCINE [Suspect]
     Active Substance: GENTAMICIN
     Indication: PRODUCT USED FOR UNKNOWN INDICATION
     Route: 042
     Dates: start: 20151030, end: 20151031
  12. X?ROQUEL [Concomitant]
     Indication: PRODUCT USED FOR UNKNOWN INDICATION
  13. FOSCAVIR [Suspect]
     Active Substance: FOSCARNET SODIUM
     Indication: KAPOSI^S VARICELLIFORM ERUPTION
     Route: 042
     Dates: start: 20150914, end: 20150922
  14. AMIKACINE [Suspect]
     Active Substance: AMIKACIN
     Indication: PRODUCT USED FOR UNKNOWN INDICATION
     Route: 042
     Dates: start: 20151124, end: 20151124
  15. RUBOZINC [Concomitant]
     Indication: PRODUCT USED FOR UNKNOWN INDICATION
  16. AMIKACINE [Suspect]
     Active Substance: AMIKACIN
     Route: 042
     Dates: start: 20151129, end: 20151129
  17. CALCIUM [Concomitant]
     Active Substance: CALCIUM
     Indication: PRODUCT USED FOR UNKNOWN INDICATION
     Route: 042
     Dates: start: 20150914, end: 20150914
  18. FOSCAVIR [Suspect]
     Active Substance: FOSCARNET SODIUM
     Indication: KERATOSIS FOLLICULAR
     Route: 042
     Dates: start: 20150922, end: 20151106
  19. CLOXACILLINE [Suspect]
     Active Substance: CLOXACILLIN
     Route: 042
     Dates: start: 20151102, end: 20151106
  20. OFLOXACINE [Concomitant]
     Active Substance: OFLOXACIN
     Indication: PRODUCT USED FOR UNKNOWN INDICATION
     Route: 048
     Dates: start: 20151102, end: 20151104

REACTIONS (12)
  - Hypocalcaemia [Unknown]
  - Off label use [Recovered/Resolved]
  - Multiple organ dysfunction syndrome [Unknown]
  - Dehydration [Unknown]
  - Hypophosphataemia [Unknown]
  - Hypernatraemia [Unknown]
  - Acute kidney injury [Not Recovered/Not Resolved]
  - Pollakiuria [Unknown]
  - Acute respiratory distress syndrome [Unknown]
  - Septic shock [Unknown]
  - Systemic candida [Unknown]
  - Hypomagnesaemia [Unknown]

NARRATIVE: CASE EVENT DATE: 20150914
